FAERS Safety Report 8139088-3 (Version None)
Quarter: 2012Q1

REPORT INFORMATION
  Report Type: 
  Country: None (occurrence: None)
  Receive Date: 20120215
  Receipt Date: 20120213
  Transmission Date: 20120608
  Serious: Yes (Other)
  Sender: FDA-Public Use
  Company Number: US-PFIZER INC-2012025248

PATIENT
  Sex: Female
  Weight: 57.596 kg

DRUGS (4)
  1. PRISTIQ [Concomitant]
     Dosage: UNK
  2. LEVOTHYROXINE [Concomitant]
     Indication: HYPOTHYROIDISM
     Dosage: 50 MG, UNK
  3. GABAPENTIN [Suspect]
     Indication: FIBROMYALGIA
     Dosage: 300 MG, 1X/DAY
     Route: 048
     Dates: start: 20120101, end: 20120101
  4. LYRICA [Suspect]
     Indication: FIBROMYALGIA
     Dosage: 300 MG, 1X/DAY
     Route: 048
     Dates: start: 20120127, end: 20120128

REACTIONS (4)
  - VISION BLURRED [None]
  - CONSTIPATION [None]
  - EPIDERMOLYSIS BULLOSA [None]
  - DIZZINESS [None]
